FAERS Safety Report 25549993 (Version 3)
Quarter: 2025Q3

REPORT INFORMATION
  Report Type: Spontaneous
  Country: US (occurrence: US)
  Receive Date: 20250714
  Receipt Date: 20250909
  Transmission Date: 20251021
  Serious: No
  Sender: BRISTOL-MYERS SQUIBB COMPANY
  Company Number: US-BRISTOL-MYERS SQUIBB COMPANY-2025-098576

PATIENT
  Age: 65 Year
  Sex: Female
  Weight: 55.4 kg

DRUGS (10)
  1. REVLIMID [Suspect]
     Active Substance: LENALIDOMIDE
     Indication: Plasma cell myeloma
     Dates: start: 20250717
  2. REVLIMID [Suspect]
     Active Substance: LENALIDOMIDE
     Dates: start: 20250619
  3. REVLIMID [Suspect]
     Active Substance: LENALIDOMIDE
     Dates: start: 20250814
  4. FENOFIBRATE [Concomitant]
     Active Substance: FENOFIBRATE
     Indication: Product used for unknown indication
  5. FENOFIBRATE [Concomitant]
     Active Substance: FENOFIBRATE
  6. ELIQUIS [Concomitant]
     Active Substance: APIXABAN
     Indication: Product used for unknown indication
  7. FERROUS SULFATE [Concomitant]
     Active Substance: FERROUS SULFATE
     Indication: Iron deficiency
  8. FERROUS SULFATE [Concomitant]
     Active Substance: FERROUS SULFATE
     Indication: Product used for unknown indication
  9. VALSARTANHCTZ [Concomitant]
     Indication: Product used for unknown indication
  10. VITAMIN D [Concomitant]
     Active Substance: VITAMIN D NOS
     Indication: Product used for unknown indication

REACTIONS (5)
  - Back pain [Not Recovered/Not Resolved]
  - Blood creatinine increased [Unknown]
  - Pyrexia [Recovered/Resolved]
  - Cough [Recovering/Resolving]
  - Diarrhoea [Unknown]

NARRATIVE: CASE EVENT DATE: 20250630
